FAERS Safety Report 8235248-1 (Version None)
Quarter: 2012Q1

REPORT INFORMATION
  Report Type: 
  Country: None (occurrence: None)
  Receive Date: 20120326
  Receipt Date: 20120322
  Transmission Date: 20120608
  Serious: Yes (Other)
  Sender: FDA-Public Use
  Company Number: US-PFIZER INC-2012075405

PATIENT
  Sex: Female
  Weight: 68.027 kg

DRUGS (2)
  1. ANBESOL MAXIMUM STRENGTH [Suspect]
     Indication: LIP PAIN
     Dosage: UNK
     Route: 048
     Dates: start: 20120320, end: 20120320
  2. ANBESOL MAXIMUM STRENGTH [Suspect]
     Indication: ORAL PAIN

REACTIONS (4)
  - CHEMICAL BURN OF GASTROINTESTINAL TRACT [None]
  - EXPIRED DRUG ADMINISTERED [None]
  - GINGIVAL PAIN [None]
  - BURNING SENSATION MUCOSAL [None]
